FAERS Safety Report 9657933 (Version 1)
Quarter: 2013Q4

REPORT INFORMATION
  Report Type: Spontaneous
  Country: IN (occurrence: IN)
  Receive Date: 20131030
  Receipt Date: 20131030
  Transmission Date: 20140711
  Serious: Yes (Hospitalization)
  Sender: FDA-Public Use
  Company Number: PHHY2013IN119946

PATIENT
  Age: 48 Year
  Sex: Female

DRUGS (1)
  1. ANASTROZOLE [Suspect]
     Dosage: 1 MG, QD

REACTIONS (8)
  - Tardive dyskinesia [Not Recovered/Not Resolved]
  - Dyskinesia [Not Recovered/Not Resolved]
  - Bite [Not Recovered/Not Resolved]
  - Bruxism [Not Recovered/Not Resolved]
  - Jaw disorder [Not Recovered/Not Resolved]
  - Speech disorder [Not Recovered/Not Resolved]
  - Choreoathetosis [Not Recovered/Not Resolved]
  - Anxiety [Not Recovered/Not Resolved]
